FAERS Safety Report 4343559-5 (Version None)
Quarter: 2004Q2

REPORT INFORMATION
  Report Type: 
  Country: None (occurrence: None)
  Receive Date: 20040419
  Receipt Date: 20040401
  Transmission Date: 20050107
  Serious: Yes (Other)
  Sender: FDA-Public Use
  Company Number: 2004207371US

PATIENT
  Age: 17 Year
  Sex: Female

DRUGS (1)
  1. CALAN SR(VERAPAMIL) CAPLET [Suspect]
     Dosage: 6489 MG

REACTIONS (5)
  - BRADYCARDIA [None]
  - COLITIS ISCHAEMIC [None]
  - HYPOTENSION [None]
  - NODAL ARRHYTHMIA [None]
  - OVERDOSE [None]
